FAERS Safety Report 12342693 (Version 1)
Quarter: 2016Q2

REPORT INFORMATION
  Report Type: Other
  Country: GB (occurrence: GB)
  Receive Date: 20160506
  Receipt Date: 20160506
  Transmission Date: 20160815
  Serious: Yes (Hospitalization, Other)
  Sender: FDA-Public Use
  Company Number: GB-MYLANLABS-2016M1017951

PATIENT

DRUGS (2)
  1. ZOTON [Suspect]
     Active Substance: LANSOPRAZOLE
     Dosage: 15 MG, UNK
     Dates: start: 201308
  2. LANSOPRAZOLE. [Suspect]
     Active Substance: LANSOPRAZOLE
     Dosage: 30 MG, 1X/DAY
     Route: 048
     Dates: start: 201206, end: 201307

REACTIONS (8)
  - Hypersensitivity [Recovered/Resolved]
  - Lip swelling [Recovered/Resolved]
  - Oral disorder [Recovered/Resolved]
  - Malaise [Recovered/Resolved]
  - Tremor [Recovered/Resolved]
  - Stomatitis [Recovered/Resolved]
  - Drug ineffective [Recovered/Resolved]
  - Blister [Recovered/Resolved]

NARRATIVE: CASE EVENT DATE: 201307
